FAERS Safety Report 9098344 (Version 2)
Quarter: 2013Q1

REPORT INFORMATION
  Report Type: Spontaneous
  Country: JP (occurrence: JP)
  Receive Date: 20130207
  Receipt Date: 20130207
  Transmission Date: 20140127
  Serious: Yes (Hospitalization)
  Sender: FDA-Public Use
  Company Number: JP-ASTRAZENECA-2013SE02119

PATIENT
  Age: 69 Year
  Sex: Female

DRUGS (6)
  1. SYMBICORT TURBUHALER [Suspect]
     Indication: ASTHMA
     Route: 055
     Dates: start: 20121217, end: 201301
  2. AMOBAN [Concomitant]
     Route: 065
  3. ROZEREM [Concomitant]
     Route: 065
  4. LIPITOR [Concomitant]
     Dosage: 15MG, NUMBER OF SEPARATE DOSAGES UNKNOWN
     Route: 048
  5. CAMOSTAT MESILATE [Concomitant]
     Dosage: 600MG, NUMBER OF SEPARATE DOSAGES UNKNOWN
     Route: 048
  6. SELBEX [Concomitant]
     Dosage: 150MG, NUMBER OF SEPARATE DOSAGES UNKNOWN
     Route: 048

REACTIONS (4)
  - Palpitations [Recovered/Resolved]
  - Headache [Recovered/Resolved]
  - Insomnia [Recovered/Resolved]
  - Blood trypsin increased [Unknown]
